FAERS Safety Report 5749660-3 (Version None)
Quarter: 2008Q2

REPORT INFORMATION
  Report Type: 
  Country: None (occurrence: None)
  Receive Date: 20080527
  Receipt Date: 20080515
  Transmission Date: 20081010
  Serious: Yes (Other)
  Sender: FDA-Public Use
  Company Number: US-MERCK-0805USA01064

PATIENT
  Age: 55 Year
  Sex: Female

DRUGS (1)
  1. INVANZ [Suspect]
     Indication: UROSEPSIS
     Route: 042
     Dates: start: 20080401, end: 20080505

REACTIONS (1)
  - PARTIAL SEIZURES [None]
